FAERS Safety Report 6264394-7 (Version None)
Quarter: 2009Q3

REPORT INFORMATION
  Report Type: 
  Country: None (occurrence: None)
  Receive Date: 20090710
  Receipt Date: 20090703
  Transmission Date: 20100115
  Serious: Yes (Hospitalization)
  Sender: FDA-Public Use
  Company Number: B0582029A

PATIENT
  Age: 65 Year
  Sex: Female

DRUGS (10)
  1. LAMICTAL [Suspect]
     Indication: DRUG USE FOR UNKNOWN INDICATION
     Route: 048
     Dates: start: 20090217, end: 20090228
  2. DEPAKOTE [Suspect]
     Indication: DRUG USE FOR UNKNOWN INDICATION
     Route: 048
     Dates: start: 20081101, end: 20090224
  3. DEROXAT [Concomitant]
     Route: 048
  4. PARKINANE LP [Concomitant]
  5. PARACETAMOL [Concomitant]
  6. NICORETTE [Concomitant]
  7. SYMBICORT [Concomitant]
  8. LOCERYL [Concomitant]
  9. UVEDOSE [Concomitant]
     Dates: start: 20090228
  10. RISPERDAL [Concomitant]

REACTIONS (5)
  - DRUG INTERACTION [None]
  - FACE OEDEMA [None]
  - INAPPROPRIATE SCHEDULE OF DRUG ADMINISTRATION [None]
  - PURPURA [None]
  - RASH PRURITIC [None]
